FAERS Safety Report 10077084 (Version 1)
Quarter: 2014Q2

REPORT INFORMATION
  Report Type: Spontaneous
  Country: TW (occurrence: None)
  Receive Date: 20140410
  Receipt Date: 20140410
  Transmission Date: 20141212
  Serious: Yes (Other)
  Sender: FDA-Public Use
  Company Number: TW-ALKEM-000551

PATIENT
  Age: 45 Year
  Sex: Female

DRUGS (3)
  1. LAMOTRIGINE [Suspect]
     Indication: BIPOLAR I DISORDER
  2. VALPROIC ACID [Suspect]
     Indication: BIPOLAR I DISORDER
  3. VENLAFAXINE [Concomitant]

REACTIONS (5)
  - Rash [None]
  - Pruritus [None]
  - Pyrexia [None]
  - Chills [None]
  - Oral mucosal blistering [None]
